FAERS Safety Report 5229304-X (Version None)
Quarter: 2007Q1

REPORT INFORMATION
  Report Type: 
  Country: None (occurrence: None)
  Receive Date: 20061201
  Receipt Date: 20060901
  Transmission Date: 20070707
  Serious: No
  Sender: FDA-Public Use
  Company Number: US200609000706

PATIENT
  Age: 48 Year
  Sex: Male

DRUGS (4)
  1. CYMBALTA [Suspect]
     Indication: ANXIETY
     Dosage: 30 MG (2/D)
     Dates: start: 20060302, end: 20060724
  2. KLONOPIN [Concomitant]
  3. FLONASE [Concomitant]
  4. VITAMINS NOS (VITAMINS NOS) [Concomitant]

REACTIONS (3)
  - BRONCHOSPASM [None]
  - CHOLELITHIASIS [None]
  - DYSPNOEA [None]
